FAERS Safety Report 8303922-4 (Version None)
Quarter: 2012Q2

REPORT INFORMATION
  Report Type: 
  Country: None (occurrence: None)
  Receive Date: 20120423
  Receipt Date: 20120418
  Transmission Date: 20120825
  Serious: Yes (Hospitalization)
  Sender: FDA-Public Use
  Company Number: PHHY2012BR031879

PATIENT
  Sex: Male
  Weight: 64 kg

DRUGS (7)
  1. PROPANTELINA [Concomitant]
  2. PARLODEL [Suspect]
     Route: 048
     Dates: start: 20120405
  3. ENOXAPARIN SODIUM [Concomitant]
  4. HEMAX [Concomitant]
  5. ESOMEPRAZOLE MAGNESIUM [Concomitant]
  6. LAMICTAL [Concomitant]
  7. BAC-SULFITRIN [Concomitant]

REACTIONS (4)
  - APALLIC SYNDROME [None]
  - PLATELET COUNT DECREASED [None]
  - CEREBRAL HAEMATOMA [None]
  - EPISTAXIS [None]
